FAERS Safety Report 6596099-7 (Version None)
Quarter: 2010Q1

REPORT INFORMATION
  Report Type: 
  Country: None (occurrence: None)
  Receive Date: 20100223
  Receipt Date: 20100215
  Transmission Date: 20100710
  Serious: Yes (Other)
  Sender: FDA-Public Use
  Company Number: JP-PFIZER INC-2010021084

PATIENT
  Age: 56 Year
  Sex: Female

DRUGS (4)
  1. HYSRON-H [Suspect]
     Indication: BREAST CANCER
     Route: 048
  2. ENDOXAN [Suspect]
     Indication: BREAST CANCER
  3. FURTULON [Suspect]
     Indication: BREAST CANCER
  4. GASTER [Concomitant]

REACTIONS (1)
  - HEPATIC FUNCTION ABNORMAL [None]
